FAERS Safety Report 14100001 (Version 1)
Quarter: 2017Q4

REPORT INFORMATION
  Report Type: Spontaneous
  Country: FR (occurrence: FR)
  Receive Date: 20171017
  Receipt Date: 20171017
  Transmission Date: 20180321
  Serious: Yes (Other)
  Sender: FDA-Public Use
  Company Number: FR-PFIZER INC-2017394284

PATIENT
  Age: 64 Year
  Sex: Female

DRUGS (3)
  1. NOVATREX NOS [Suspect]
     Active Substance: AZITHROMYCIN OR METHOTREXATE SODIUM
     Indication: RHEUMATOID ARTHRITIS
     Dosage: 12.5 MG, WEEKLY  (WEDNESDAY)
  2. CYSTINE B6 [Concomitant]
     Dosage: UNK
  3. LEXOMIL [Suspect]
     Active Substance: BROMAZEPAM
     Dosage: UNK
     Dates: start: 20170907

REACTIONS (9)
  - Anxiety [Recovered/Resolved]
  - Palpitations [Unknown]
  - Abdominal pain [Unknown]
  - Fatigue [Unknown]
  - Joint effusion [Unknown]
  - Vascular rupture [Unknown]
  - Pain in extremity [Unknown]
  - Infection [Recovered/Resolved]
  - Dyspnoea [Unknown]

NARRATIVE: CASE EVENT DATE: 2017
